FAERS Safety Report 10683146 (Version 1)
Quarter: 2014Q4

REPORT INFORMATION
  Report Type: Spontaneous
  Country: US (occurrence: None)
  Receive Date: 20141217
  Receipt Date: 20141217
  Transmission Date: 20150529
  Serious: Yes (Other)
  Sender: FDA-Public Use
  Company Number: TPA2009A01931

PATIENT
  Age: 55 Year
  Sex: Male

DRUGS (1)
  1. KAPIDEX [Suspect]
     Active Substance: DEXLANSOPRAZOLE
     Indication: REFLUX LARYNGITIS
     Route: 048

REACTIONS (5)
  - Paraesthesia oral [None]
  - Hypersensitivity [None]
  - Rash [None]
  - Eye swelling [None]
  - Local swelling [None]
